FAERS Safety Report 19063157 (Version 4)
Quarter: 2022Q2

REPORT INFORMATION
  Report Type: Spontaneous
  Country: BR (occurrence: BR)
  Receive Date: 20210326
  Receipt Date: 20220628
  Transmission Date: 20220721
  Serious: Yes (Other)
  Sender: FDA-Public Use
  Company Number: BR-GLAXOSMITHKLINE-BR2021AMR066142

PATIENT

DRUGS (1)
  1. ALBUTEROL [Suspect]
     Active Substance: ALBUTEROL
     Indication: Asthmatic crisis
     Dosage: 1 PUFF(S),WHEN IN CRISIS, 200 DOSES
     Route: 055

REACTIONS (4)
  - Asthmatic crisis [Unknown]
  - Lung disorder [Unknown]
  - Wrong technique in product usage process [Unknown]
  - Product complaint [Unknown]
